FAERS Safety Report 23889383 (Version 1)
Quarter: 2024Q2

REPORT INFORMATION
  Report Type: Spontaneous
  Country: CN (occurrence: CN)
  Receive Date: 20240523
  Receipt Date: 20240523
  Transmission Date: 20240716
  Serious: Yes (Other)
  Sender: FDA-Public Use
  Company Number: CN-PFIZER INC-PV202400066652

PATIENT
  Age: 40 Year
  Sex: Female

DRUGS (1)
  1. CYTARABINE [Suspect]
     Active Substance: CYTARABINE
     Indication: Acute myeloid leukaemia
     Dosage: 300 MG, 1X/DAY
     Route: 041
     Dates: start: 20240504, end: 20240506

REACTIONS (7)
  - Drug hypersensitivity [Recovered/Resolved]
  - Protein total decreased [Unknown]
  - Blood albumin decreased [Unknown]
  - Blood urea decreased [Unknown]
  - Haemoglobin decreased [Unknown]
  - Red blood cell count decreased [Unknown]
  - White blood cell count decreased [Unknown]

NARRATIVE: CASE EVENT DATE: 20240501
